FAERS Safety Report 6882341-1 (Version None)
Quarter: 2010Q3

REPORT INFORMATION
  Report Type: 
  Country: None (occurrence: None)
  Receive Date: 20100729
  Receipt Date: 20100412
  Transmission Date: 20110219
  Serious: Yes (Other)
  Sender: FDA-Public Use
  Company Number: US-MYLANLABS-2010S1003189

PATIENT
  Age: 52 Year
  Sex: Male
  Weight: 96.16 kg

DRUGS (20)
  1. LEVOTHYROXINE SODIUM [Suspect]
     Indication: HYPOTHYROIDISM
     Route: 048
     Dates: start: 20100222, end: 20100223
  2. BYSTOLIC [Concomitant]
     Indication: BLOOD PRESSURE
     Route: 048
  3. BYSTOLIC [Concomitant]
     Route: 048
  4. AMLODIPINE [Concomitant]
     Indication: BLOOD PRESSURE
     Route: 048
  5. MAXZIDE [Concomitant]
     Indication: OEDEMA PERIPHERAL
     Dosage: 1 TABLET QAM AND 1/2 TABLET PRN AT SUPER
     Route: 048
  6. POTASSIUM [Concomitant]
     Indication: BLOOD PRESSURE
     Dosage: AFTER MEALS
     Route: 048
  7. ASPIRIN [Concomitant]
     Indication: BLOOD CHOLESTEROL
     Route: 048
  8. FISH OIL [Concomitant]
     Indication: BLOOD CHOLESTEROL
     Route: 048
  9. VYTORIN [Concomitant]
     Indication: BLOOD CHOLESTEROL
     Dosage: 10/20MG
     Route: 048
  10. NITROGLYCERIN [Concomitant]
     Indication: CHEST PAIN
     Route: 060
  11. PANTOPRAZOLE [Concomitant]
     Indication: HIATUS HERNIA
     Route: 048
  12. ANTACID /00018101/ [Concomitant]
     Indication: HIATUS HERNIA
     Dosage: AS NEEDED FOR FLARE - UP
     Route: 048
  13. SUCRALFATE [Concomitant]
     Indication: HIATUS HERNIA
     Dosage: PRN FOR FLARE UP
     Route: 048
  14. LANTUS [Concomitant]
     Indication: DIABETES MELLITUS
     Dosage: UNITS SQ
     Route: 058
  15. HUMALOG [Concomitant]
     Indication: DIABETES MELLITUS
     Dosage: SLIDING SCALE AC AND PRN
     Route: 058
  16. ALBUTEROL [Concomitant]
     Indication: ASTHMA
     Dosage: PRN FOR SOB-ASTHMA
     Route: 055
  17. ZYRTEC [Concomitant]
     Indication: HYPERSENSITIVITY
     Dosage: QD PRN FOR ALLERY SYMPTOMS
     Route: 048
  18. LEVITRA [Concomitant]
     Dosage: 1/2 TABLET PRN
     Route: 048
  19. MULTIVITAMIN AND MINERAL [Concomitant]
  20. BYETTA [Concomitant]

REACTIONS (2)
  - ANGIOEDEMA [None]
  - RASH [None]
